FAERS Safety Report 19911797 (Version 1)
Quarter: 2021Q4

REPORT INFORMATION
  Report Type: Spontaneous
  Country: US (occurrence: US)
  Receive Date: 20211002
  Receipt Date: 20211002
  Transmission Date: 20220303
  Serious: Yes (Other)
  Sender: FDA-Public Use
  Company Number: None

PATIENT
  Age: 37 Year
  Sex: Male
  Weight: 123.75 kg

DRUGS (5)
  1. LOTRIMIN ANTIFUNGAL (MICONAZOLE NITRATE) [Suspect]
     Active Substance: MICONAZOLE NITRATE
     Indication: Tinea cruris
     Dosage: ?          QUANTITY:1 SPRAY(S);
     Route: 061
     Dates: start: 20210401, end: 20211001
  2. IBUPROFEN [Concomitant]
     Active Substance: IBUPROFEN
  3. OMEPRAZOLE [Concomitant]
     Active Substance: OMEPRAZOLE
  4. IMODIUM [Concomitant]
     Active Substance: LOPERAMIDE HYDROCHLORIDE
  5. VITAMIN D [Concomitant]
     Active Substance: VITAMIN D NOS

REACTIONS (2)
  - Inguinal mass [None]
  - Cyst [None]

NARRATIVE: CASE EVENT DATE: 20210920
